FAERS Safety Report 6104826-8 (Version None)
Quarter: 2009Q1

REPORT INFORMATION
  Report Type: 
  Country: None (occurrence: None)
  Receive Date: 20090306
  Receipt Date: 20090302
  Transmission Date: 20090719
  Serious: No
  Sender: FDA-Public Use
  Company Number: US-JNJFOC-20090300750

PATIENT
  Sex: Female
  Weight: 61.24 kg

DRUGS (5)
  1. DURAGESIC-100 [Suspect]
     Indication: NEURALGIA
     Route: 062
  2. UNKNOWN ANTIDEPRESSANT [Suspect]
     Indication: HOT FLUSH
     Route: 048
  3. MIRTAZAPINE [Suspect]
     Indication: DEPRESSION
     Route: 048
  4. NEURONTIN [Concomitant]
     Indication: NEURALGIA
     Route: 048
  5. TRAMADOL HCL [Concomitant]
     Indication: PAIN
     Route: 048

REACTIONS (5)
  - DRUG DOSE OMISSION [None]
  - DYSPNOEA [None]
  - PAIN [None]
  - RASH [None]
  - WITHDRAWAL SYNDROME [None]
